FAERS Safety Report 7546162-9 (Version None)
Quarter: 2011Q2

REPORT INFORMATION
  Report Type: 
  Country: None (occurrence: None)
  Receive Date: 20110614
  Receipt Date: 20020712
  Transmission Date: 20111010
  Serious: Yes (Death)
  Sender: FDA-Public Use
  Company Number: PHBS2002JP06758

PATIENT
  Sex: Male

DRUGS (4)
  1. PREDNISOLONE [Concomitant]
     Dosage: 30 MG/D
     Route: 048
     Dates: start: 20011004, end: 20011121
  2. SANDIMMUNE [Suspect]
     Indication: BONE MARROW TRANSPLANT
     Dosage: 170-40 MG/D
     Route: 042
     Dates: start: 20010606, end: 20010730
  3. NEORAL [Suspect]
     Dosage: 40 MG, QD
     Route: 048
     Dates: start: 20010929, end: 20011121
  4. NEORAL [Suspect]
     Indication: BONE MARROW TRANSPLANT
     Dosage: 80 MG/D
     Route: 048
     Dates: start: 20010731, end: 20010928

REACTIONS (2)
  - INTERSTITIAL LUNG DISEASE [None]
  - GRAFT VERSUS HOST DISEASE [None]
